FAERS Safety Report 9891488 (Version 1)
Quarter: 2014Q1

REPORT INFORMATION
  Report Type: Spontaneous
  Country: TR (occurrence: None)
  Receive Date: 20140207
  Receipt Date: 20140207
  Transmission Date: 20141002
  Serious: Yes (Other)
  Sender: FDA-Public Use
  Company Number: B0965438A

PATIENT
  Age: 75 Year
  Sex: Male

DRUGS (1)
  1. CEFUROXIME SODIUM [Suspect]
     Indication: PRODUCT USED FOR UNKNOWN INDICATION
     Dosage: 60 MG / SINGLE DOSE / INJECTION

REACTIONS (6)
  - Cataract [None]
  - Retinal haemorrhage [None]
  - Overdose [None]
  - Retinal haemorrhage [None]
  - Toxicity to various agents [None]
  - Post procedural haemorrhage [None]
